FAERS Safety Report 13496101 (Version 1)
Quarter: 2017Q2

REPORT INFORMATION
  Report Type: Spontaneous
  Country: JP (occurrence: JP)
  Receive Date: 20170428
  Receipt Date: 20170428
  Transmission Date: 20170830
  Serious: Yes (Other)
  Sender: FDA-Public Use
  Company Number: JP-PFIZER INC-2017185891

PATIENT

DRUGS (1)
  1. CABASER 0.25MG [Suspect]
     Active Substance: CABERGOLINE
     Dosage: 0.75 MG, WEEKLY
     Route: 048

REACTIONS (1)
  - Meniere^s disease [Unknown]
